FAERS Safety Report 9720612 (Version 4)
Quarter: 2014Q2

REPORT INFORMATION
  Report Type: Report from Study
  Country: JP (occurrence: JP)
  Receive Date: 20131129
  Receipt Date: 20140515
  Transmission Date: 20141212
  Serious: Yes (Hospitalization, Other)
  Sender: FDA-Public Use
  Company Number: PHHY2013JP052186

PATIENT
  Age: 23 Year
  Sex: Male

DRUGS (5)
  1. FTY 720 [Suspect]
     Indication: MULTIPLE SCLEROSIS RELAPSE
     Dosage: 0.5 MG, QD
     Route: 048
     Dates: start: 20121128
  2. GASTER D [Concomitant]
     Dosage: 20 MG, UNK
     Route: 048
     Dates: end: 20121223
  3. PURSENNID//SENNA ALEXANDRINA LEAF [Concomitant]
     Dosage: 24 MG, UNK
     Route: 048
     Dates: end: 20121223
  4. LOXONIN [Concomitant]
     Dosage: 60 MG, QD
     Route: 048
     Dates: end: 20130906
  5. MUCOSTA [Concomitant]
     Dosage: 100 MG, QD
     Route: 048
     Dates: end: 20130906

REACTIONS (4)
  - Gastroenteritis viral [Recovered/Resolved]
  - Convulsion [Recovered/Resolved]
  - Hepatic function abnormal [Recovering/Resolving]
  - Viral infection [Recovered/Resolved]
